FAERS Safety Report 23790760 (Version 1)
Quarter: 2024Q2

REPORT INFORMATION
  Report Type: Spontaneous
  Country: US (occurrence: US)
  Receive Date: 20240427
  Receipt Date: 20240427
  Transmission Date: 20240715
  Serious: No
  Sender: FDA-Public Use
  Company Number: US-TEVA-VS-3173536

PATIENT
  Age: 73 Year
  Sex: Female

DRUGS (1)
  1. CLONIDINE [Suspect]
     Active Substance: CLONIDINE
     Indication: Blood pressure measurement
     Dosage: 0.3 MG / DAY
     Route: 065
     Dates: start: 20240219

REACTIONS (1)
  - Drug ineffective [Unknown]
